FAERS Safety Report 9200055 (Version 1)
Quarter: 2013Q1

REPORT INFORMATION
  Report Type: Spontaneous
  Country: FR (occurrence: FR)
  Receive Date: 20130329
  Receipt Date: 20130329
  Transmission Date: 20140127
  Serious: Yes (Other)
  Sender: FDA-Public Use
  Company Number: FR-ASTRAZENECA-2013SE17661

PATIENT
  Age: 9517 Day
  Sex: Female

DRUGS (4)
  1. XEROQUEL [Suspect]
     Indication: DEPRESSION
     Route: 048
     Dates: start: 20130109
  2. XEROQUEL [Suspect]
     Indication: DEPRESSION
     Route: 048
     Dates: start: 20130220, end: 20130226
  3. DEPAMIDE [Concomitant]
     Route: 048
     Dates: end: 20130208
  4. MACROGOL [Concomitant]

REACTIONS (5)
  - Eosinophil count decreased [Not Recovered/Not Resolved]
  - Leukopenia [Recovered/Resolved]
  - Neutropenia [Not Recovered/Not Resolved]
  - Thrombocytopenia [Recovered/Resolved]
  - Fatigue [Unknown]
